FAERS Safety Report 13326658 (Version 1)
Quarter: 2017Q1

REPORT INFORMATION
  Report Type: Spontaneous
  Country: US (occurrence: US)
  Receive Date: 20170311
  Receipt Date: 20170311
  Transmission Date: 20170428
  Serious: No
  Sender: FDA-Public Use
  Company Number: US-LUNDBECK-DKLU2025949

PATIENT
  Age: 43 Year
  Sex: Female

DRUGS (2)
  1. NORTHERA [Suspect]
     Active Substance: DROXIDOPA
     Indication: AUTONOMIC FAILURE SYNDROME
     Dosage: SCHEDULE B/TITRATION COMPLETE
     Route: 048
     Dates: start: 20161216
  2. NORTHERA [Suspect]
     Active Substance: DROXIDOPA
     Indication: AUTONOMIC NEUROPATHY

REACTIONS (7)
  - Headache [Unknown]
  - Blood pressure increased [Unknown]
  - Dyspnoea [Unknown]
  - Feeling abnormal [Unknown]
  - Respiratory rate increased [Unknown]
  - Fatigue [Unknown]
  - Nausea [Unknown]

NARRATIVE: CASE EVENT DATE: 20170125
